FAERS Safety Report 9103185 (Version 2)
Quarter: 2013Q4

REPORT INFORMATION
  Report Type: Spontaneous
  Country: GB (occurrence: GB)
  Receive Date: 20130219
  Receipt Date: 20131010
  Transmission Date: 20140711
  Serious: Yes (Death, Hospitalization)
  Sender: FDA-Public Use
  Company Number: GB-TEVA-385912ISR

PATIENT
  Sex: Female

DRUGS (16)
  1. FUROSEMIDE [Suspect]
     Dates: start: 20091021
  2. WARFARIN [Interacting]
     Dates: start: 20051114
  3. TAMOXIFEN [Interacting]
     Dosage: PUT ON HOLD FOR 3 MONTHS
     Dates: start: 200506, end: 20090921
  4. DIGOXIN [Suspect]
     Dates: start: 20051113, end: 20060307
  5. AUGMENTIN [Suspect]
     Dosage: INDICATION: MISDIAGNOSED SWINE FLU
     Dates: start: 20091105, end: 20091112
  6. FERROUS GLUCONATE [Concomitant]
     Dates: start: 1978
  7. LEVOTHYROXINE SODIUM [Concomitant]
     Dosage: NOT ABLE TO MANAGE EVERYDAY
     Dates: start: 20090615
  8. TIOTROPIUM BROMIDE [Concomitant]
     Route: 055
     Dates: start: 20090814
  9. ATENOLOL [Concomitant]
     Dates: start: 20051113, end: 20091220
  10. CANDESARTAN [Concomitant]
     Dates: start: 20090313
  11. BUCCASTEM [Concomitant]
     Indication: NAUSEA
     Dates: start: 20091104, end: 20091105
  12. BUSCOPAN [Concomitant]
     Indication: ABDOMINAL PAIN
     Dates: start: 20091104, end: 20091110
  13. FERROUS SULPHATE [Concomitant]
     Indication: ANAEMIA
     Dosage: 200MG X 3
     Dates: start: 20091127
  14. AMOXICILLIN [Concomitant]
     Indication: LOWER RESPIRATORY TRACT INFECTION
     Dates: start: 20091220
  15. CO-CODAMOL [Concomitant]
     Indication: CHEST PAIN
     Dosage: 8MG/500MG
     Dates: start: 20091220
  16. LACTULOSE [Concomitant]
     Indication: ABDOMINAL PAIN UPPER
     Route: 048
     Dates: start: 20091220

REACTIONS (14)
  - Aortic aneurysm [Fatal]
  - Aortic aneurysm [Fatal]
  - Thrombocytopenia [Not Recovered/Not Resolved]
  - Therapeutic product ineffective [Unknown]
  - Malaise [Not Recovered/Not Resolved]
  - Contusion [Recovered/Resolved]
  - Dyspnoea [Recovered/Resolved]
  - Asthenia [Recovered/Resolved]
  - Aortic rupture [Not Recovered/Not Resolved]
  - Drug interaction [Unknown]
  - Blister [Unknown]
  - Haemorrhage [Unknown]
  - Anaemia [Not Recovered/Not Resolved]
  - Faeces discoloured [Not Recovered/Not Resolved]
